FAERS Safety Report 6387634-2 (Version None)
Quarter: 2009Q4

REPORT INFORMATION
  Report Type: 
  Country: None (occurrence: None)
  Receive Date: 20091005
  Receipt Date: 20090902
  Transmission Date: 20100525
  Serious: No
  Sender: FDA-Public Use
  Company Number: US-BAYER-200932405NA

PATIENT
  Age: 68 Year
  Sex: Male
  Weight: 68 kg

DRUGS (1)
  1. CIPRO [Suspect]
     Indication: SKIN ULCER
     Dosage: TOTAL DAILY DOSE: 250 MG  UNIT DOSE: 500 MG
     Dates: start: 20090902

REACTIONS (1)
  - NASAL CONGESTION [None]
